FAERS Safety Report 9207014 (Version 2)
Quarter: 2013Q4

REPORT INFORMATION
  Report Type: Spontaneous
  Country: US (occurrence: US)
  Receive Date: 20130403
  Receipt Date: 20131114
  Transmission Date: 20140711
  Serious: Yes (Other)
  Sender: FDA-Public Use
  Company Number: US-BAYER-2013-040518

PATIENT
  Age: 24 Year
  Sex: Female

DRUGS (6)
  1. YAZ [Suspect]
     Dosage: UNK
     Dates: start: 2006, end: 2007
  2. YASMIN [Suspect]
     Dosage: UNK
     Dates: start: 2006, end: 2007
  3. OCELLA [Suspect]
     Dosage: UNK
     Dates: start: 2006, end: 2007
  4. FERROUS SULFATE [Concomitant]
     Dosage: 325 MG, 1 DAILY
     Route: 048
     Dates: start: 20100213
  5. HYDROCODONE/ACETAMINOPHEN [Concomitant]
     Indication: PAIN
     Dosage: 7.5-500 TAKE 1-2 EVERY 4 HOURS AS NEEDED
     Route: 048
     Dates: start: 20100213
  6. IBUPROFEN [Concomitant]
     Dosage: 800 MG, 3 TIMES DAILY
     Route: 048
     Dates: start: 20100213, end: 20110112

REACTIONS (10)
  - Cholelithiasis [None]
  - Abdominal pain [None]
  - Injury [None]
  - Pain [None]
  - Anxiety [None]
  - General physical health deterioration [None]
  - Emotional distress [None]
  - Pain [None]
  - Anhedonia [None]
  - Fear [None]
